FAERS Safety Report 5080703-9 (Version None)
Quarter: 2006Q3

REPORT INFORMATION
  Report Type: 
  Country: None (occurrence: None)
  Receive Date: 20060809
  Receipt Date: 20060727
  Transmission Date: 20061208
  Serious: Yes (Other)
  Sender: FDA-Public Use
  Company Number: 2006045022

PATIENT
  Age: 35 Year
  Sex: Female

DRUGS (1)
  1. SULFASALAZINE [Suspect]
     Indication: ARTHRITIS
     Dosage: 2 GRAM (1 GRAM, 2 IN 1 D)
     Dates: start: 20060228, end: 20060315

REACTIONS (3)
  - LYMPHADENOPATHY [None]
  - MALAISE [None]
  - RASH [None]
